FAERS Safety Report 15388138 (Version 1)
Quarter: 2018Q3

REPORT INFORMATION
  Report Type: Spontaneous
  Country: FR (occurrence: FR)
  Receive Date: 20180915
  Receipt Date: 20180915
  Transmission Date: 20181010
  Serious: Yes (Hospitalization)
  Sender: FDA-Public Use
  Company Number: FR-AUROBINDO-AUR-APL-2018-045700

PATIENT
  Age: 88 Year
  Sex: Female
  Weight: 65 kg

DRUGS (4)
  1. COUMADINE [Suspect]
     Active Substance: WARFARIN SODIUM
     Indication: ATRIAL FIBRILLATION
     Dosage: UNK
     Route: 048
     Dates: end: 20180625
  2. PAROXETINE. [Suspect]
     Active Substance: PAROXETINE
     Indication: DEPRESSION
     Dosage: 10 MILLIGRAM, ONCE A DAY
     Route: 048
     Dates: start: 20180621, end: 20180627
  3. CLAVULANIC ACID [Suspect]
     Active Substance: CLAVULANIC ACID
     Indication: PYELONEPHRITIS ACUTE
     Dosage: 375 MILLIGRAM, ONCE A DAY
     Route: 048
     Dates: start: 20180622, end: 20180626
  4. AMOXICILLIN. [Suspect]
     Active Substance: AMOXICILLIN
     Indication: PYELONEPHRITIS ACUTE
     Dosage: 3 GRAM, ONCE A DAY
     Route: 048
     Dates: start: 20180622, end: 20180626

REACTIONS (2)
  - International normalised ratio increased [Recovered/Resolved]
  - Epistaxis [Recovered/Resolved]

NARRATIVE: CASE EVENT DATE: 20180625
